FAERS Safety Report 8134754-8 (Version None)
Quarter: 2012Q1

REPORT INFORMATION
  Report Type: 
  Country: None (occurrence: None)
  Receive Date: 20120214
  Receipt Date: 20120207
  Transmission Date: 20120608
  Serious: Yes (Other)
  Sender: FDA-Public Use
  Company Number: US-PFIZER INC-2012033637

PATIENT
  Sex: Female
  Weight: 48.526 kg

DRUGS (3)
  1. GABAPENTIN [Suspect]
     Indication: DIABETIC NEUROPATHY
     Dosage: 300 MG, 3X/DAY
     Route: 048
     Dates: start: 20110309, end: 20110701
  2. TENORMIN [Concomitant]
     Indication: TACHYCARDIA
     Dosage: 50 MG, 2X/DAY
  3. NEURONTIN [Suspect]
     Dosage: 300MG, UNK

REACTIONS (2)
  - BLOOD IRON DECREASED [None]
  - OVERWEIGHT [None]
